FAERS Safety Report 8063679-1 (Version None)
Quarter: 2012Q1

REPORT INFORMATION
  Report Type: 
  Country: None (occurrence: None)
  Receive Date: 20120118
  Receipt Date: 20120109
  Transmission Date: 20120608
  Serious: Yes (Hospitalization)
  Sender: FDA-Public Use
  Company Number: DSA_48849_2012

PATIENT
  Age: 49 Year
  Sex: Male

DRUGS (5)
  1. CLOZAPINE [Suspect]
     Indication: PARANOIA
     Dosage: (325 MG QD, ORAL)
     Route: 048
     Dates: start: 19990101, end: 20081001
  2. CLOZAPINE [Suspect]
     Indication: SCHIZOPHRENIA
     Dosage: (325 MG QD, ORAL)
     Route: 048
     Dates: start: 19990101, end: 20081001
  3. RISPERIDONE [Concomitant]
  4. ENALAPRIL MALEATE [Suspect]
     Indication: HYPERTENSION
     Dosage: (DF ORAL)
     Route: 048
     Dates: start: 20080801, end: 20080901
  5. QUETIAPINE FUMARATE [Concomitant]

REACTIONS (13)
  - DRUG INEFFECTIVE [None]
  - RENAL FAILURE [None]
  - EXTRAPYRAMIDAL DISORDER [None]
  - SOMATOFORM DISORDER [None]
  - LACUNAR INFARCTION [None]
  - REFUSAL OF TREATMENT BY PATIENT [None]
  - TACHYCARDIA [None]
  - HYPERTENSION [None]
  - LEFT ATRIAL HYPERTROPHY [None]
  - EYELID OEDEMA [None]
  - PERIORBITAL OEDEMA [None]
  - PSYCHOTIC DISORDER [None]
  - DRUG HYPERSENSITIVITY [None]
